FAERS Safety Report 22349673 (Version 1)
Quarter: 2023Q2

REPORT INFORMATION
  Report Type: Spontaneous
  Country: US (occurrence: US)
  Receive Date: 20230522
  Receipt Date: 20230522
  Transmission Date: 20230722
  Serious: Yes (Other)
  Sender: FDA-Public Use
  Company Number: US-002147023-NVSC2023US111731

PATIENT
  Age: 51 Year
  Sex: Female

DRUGS (2)
  1. FINGOLIMOD [Suspect]
     Active Substance: FINGOLIMOD
     Indication: Relapsing-remitting multiple sclerosis
     Dosage: 0.5 MG, QD
     Route: 065
  2. METHYLPREDNISOLONE [Concomitant]
     Active Substance: METHYLPREDNISOLONE
     Indication: Relapsing-remitting multiple sclerosis
     Dosage: 1000 MG, QD (TWO ROUNDS)
     Route: 042

REACTIONS (4)
  - Immune reconstitution inflammatory syndrome [Recovering/Resolving]
  - Progressive multifocal leukoencephalopathy [Recovering/Resolving]
  - Relapsing-remitting multiple sclerosis [Not Recovered/Not Resolved]
  - Disease progression [Not Recovered/Not Resolved]
